FAERS Safety Report 11809950 (Version 1)
Quarter: 2015Q4

REPORT INFORMATION
  Report Type: Spontaneous
  Country: US (occurrence: None)
  Receive Date: 20151207
  Receipt Date: 20151207
  Transmission Date: 20160305
  Serious: No
  Sender: FDA-Public Use
  Company Number: None

PATIENT
  Sex: Female
  Weight: 55.57 kg

DRUGS (2)
  1. GENERIC INTUNIV 3MG SANDOZ [Suspect]
     Active Substance: GUANFACINE HYDROCHLORIDE
     Indication: AUTISM SPECTRUM DISORDER
     Route: 048
     Dates: start: 20150928
  2. GENERIC INTUNIV 3MG ACTAVIS [Suspect]
     Active Substance: GUANFACINE HYDROCHLORIDE
     Indication: ATTENTION DEFICIT/HYPERACTIVITY DISORDER
     Route: 048
     Dates: start: 20150810, end: 20150923

REACTIONS (8)
  - Self injurious behaviour [None]
  - Product substitution issue [None]
  - Drug ineffective [None]
  - Attention deficit/hyperactivity disorder [None]
  - Apathy [None]
  - Impulsive behaviour [None]
  - Poor quality sleep [None]
  - Fatigue [None]
